FAERS Safety Report 23235079 (Version 2)
Quarter: 2024Q1

REPORT INFORMATION
  Report Type: Spontaneous
  Country: US (occurrence: US)
  Receive Date: 20231128
  Receipt Date: 20240207
  Transmission Date: 20240410
  Serious: No
  Sender: FDA-Public Use
  Company Number: US-PFIZER INC-202300404830

PATIENT
  Age: 75 Year
  Sex: Female
  Weight: 60.771 kg

DRUGS (4)
  1. PAXLOVID [Suspect]
     Active Substance: NIRMATRELVIR\RITONAVIR
     Indication: COVID-19 treatment
     Dosage: (3 TABLETS EVERY 12 HRS FOR 5 DAYS), 2X/DAY
     Dates: start: 20231113, end: 20231117
  2. TYLENOL [Concomitant]
     Active Substance: ACETAMINOPHEN
     Dosage: UNK
     Dates: start: 20231113, end: 20231115
  3. NASAL DECONGESTANT [BROMPHENIRAMINE MALEATE;PSEUDOEPHEDRINE] [Concomitant]
     Dosage: UNK
     Dates: start: 20231113, end: 20231115
  4. CEPHALEXIN [Concomitant]
     Active Substance: CEPHALEXIN
     Dosage: 250 MG
     Dates: start: 20231103

REACTIONS (2)
  - COVID-19 [Recovered/Resolved]
  - Disease recurrence [Recovered/Resolved]

NARRATIVE: CASE EVENT DATE: 20231123
